FAERS Safety Report 7042671-X (Version None)
Quarter: 2010Q4

REPORT INFORMATION
  Report Type: 
  Country: None (occurrence: None)
  Receive Date: 20101013
  Receipt Date: 20100222
  Transmission Date: 20110411
  Serious: No
  Sender: FDA-Public Use
  Company Number: US-ASTRAZENECA-2010SE07590

PATIENT
  Age: 57 Year
  Sex: Female

DRUGS (5)
  1. SYMBICORT [Suspect]
     Indication: ASTHMA
     Dosage: 160/4.5 UG 2 PUFFS BID
     Route: 055
     Dates: start: 20100107, end: 20100201
  2. SINGULAIR [Concomitant]
     Indication: ASTHMA
  3. ALBUTEROL [Concomitant]
     Indication: ASTHMA
  4. FLONASE [Concomitant]
  5. ACTONEL [Concomitant]
     Indication: OSTEOPOROSIS

REACTIONS (1)
  - BREATH SOUNDS ABNORMAL [None]
